FAERS Safety Report 7964356-5 (Version None)
Quarter: 2011Q4

REPORT INFORMATION
  Report Type: 
  Country: None (occurrence: None)
  Receive Date: 20111208
  Receipt Date: 20111128
  Transmission Date: 20120403
  Serious: Yes (Hospitalization)
  Sender: FDA-Public Use
  Company Number: US-BAYER-2011-032062

PATIENT
  Age: 21 Year
  Sex: Female
  Weight: 77.098 kg

DRUGS (8)
  1. DROSPIRENONE AND ETHINYL ESTRADIOL [Suspect]
     Indication: CONTRACEPTION
     Dosage: UNK
     Dates: start: 20080901, end: 20091001
  2. YASMIN [Suspect]
     Indication: CONTRACEPTION
     Dosage: UNK
     Dates: start: 20040101, end: 20070101
  3. DROSPIRENONE AND ETHINYL ESTRADIOL [Suspect]
     Indication: ACNE
  4. NAPROXEN [Concomitant]
     Dosage: UNK
     Dates: start: 20090817
  5. YASMIN [Suspect]
     Indication: ACNE
  6. CYCLOBENZAPRINE [Concomitant]
     Dosage: UNK
     Dates: start: 20090817
  7. YASMIN [Suspect]
     Indication: MENSTRUAL CYCLE MANAGEMENT
  8. DROSPIRENONE AND ETHINYL ESTRADIOL [Suspect]
     Indication: MENSTRUAL CYCLE MANAGEMENT

REACTIONS (4)
  - MENTAL DISORDER [None]
  - PAIN [None]
  - CHOLECYSTITIS [None]
  - CHOLECYSTITIS CHRONIC [None]
